FAERS Safety Report 5364786-4 (Version None)
Quarter: 2007Q2

REPORT INFORMATION
  Report Type: 
  Country: None (occurrence: None)
  Receive Date: 20070530
  Receipt Date: 20070124
  Transmission Date: 20071010
  Serious: No
  Sender: FDA-Public Use
  Company Number: 2006PV011098

PATIENT
  Age: 60 Year
  Sex: Female
  Weight: 68.4932 kg

DRUGS (10)
  1. BYETTA [Suspect]
     Indication: DIABETES MELLITUS NON-INSULIN-DEPENDENT
     Dosage: 10 MCG;BID;SC  5 MCG;BID;SC   10 MCG;BID;SC  5 MCG;BID;SC
     Route: 058
     Dates: start: 20060324, end: 20060801
  2. BYETTA [Suspect]
     Indication: DIABETES MELLITUS NON-INSULIN-DEPENDENT
     Dosage: 10 MCG;BID;SC  5 MCG;BID;SC   10 MCG;BID;SC  5 MCG;BID;SC
     Route: 058
     Dates: start: 20060323, end: 20060901
  3. BYETTA [Suspect]
     Indication: DIABETES MELLITUS NON-INSULIN-DEPENDENT
     Dosage: 10 MCG;BID;SC  5 MCG;BID;SC   10 MCG;BID;SC  5 MCG;BID;SC
     Route: 058
     Dates: start: 20060801
  4. BYETTA [Suspect]
     Indication: DIABETES MELLITUS NON-INSULIN-DEPENDENT
     Dosage: 10 MCG;BID;SC  5 MCG;BID;SC   10 MCG;BID;SC  5 MCG;BID;SC
     Route: 058
     Dates: start: 20060901
  5. BYETTA [Suspect]
  6. BYETTA [Suspect]
  7. BYETTA [Suspect]
  8. PRANDIN [Concomitant]
  9. GLUCOPHAGE [Concomitant]
  10. AVANDIA [Concomitant]

REACTIONS (12)
  - BLOOD GLUCOSE FLUCTUATION [None]
  - BLOOD GLUCOSE INCREASED [None]
  - CATARACT [None]
  - DECREASED APPETITE [None]
  - DRUG EFFECT DECREASED [None]
  - EYE DISORDER [None]
  - FATIGUE [None]
  - INJECTION SITE BRUISING [None]
  - INJECTION SITE PAIN [None]
  - INJECTION SITE REACTION [None]
  - INJECTION SITE SCAR [None]
  - WEIGHT DECREASED [None]
